FAERS Safety Report 9199661 (Version 2)
Quarter: 2014Q3

REPORT INFORMATION
  Report Type: Spontaneous
  Country: US (occurrence: None)
  Receive Date: 20130326
  Receipt Date: 20140807
  Transmission Date: 20150326
  Serious: Yes (Hospitalization, Other)
  Sender: FDA-Public Use
  Company Number: 2012-002859

PATIENT
  Age: 59 Year
  Sex: Female

DRUGS (7)
  1. ACTONEL [Suspect]
     Active Substance: RISEDRONATE SODIUM
     Indication: OSTEOPENIA
     Dosage: ONCE WEEKLY
     Route: 048
     Dates: start: 20050818, end: 200808
  2. VAGIFEM (ESTRADIOL) [Concomitant]
  3. BONIVA [Suspect]
     Active Substance: IBANDRONATE SODIUM
     Indication: OSTEOPOROSIS PROPHYLAXIS
     Dosage: ONCE
     Route: 048
     Dates: start: 20080829, end: 201007
  4. BONIVA [Suspect]
     Active Substance: IBANDRONATE SODIUM
     Indication: OSTEOPOROSIS
     Dosage: ONCE
     Route: 048
     Dates: start: 20080829, end: 201007
  5. BONIVA [Suspect]
     Active Substance: IBANDRONATE SODIUM
     Indication: OSTEOPENIA
     Dosage: ONCE
     Route: 048
     Dates: start: 20080829, end: 201007
  6. ZANTAC [Concomitant]
     Active Substance: RANITIDINE HYDROCHLORIDE
  7. CALCIUM PLUS VITAMIN D (CALCIUM, COLECALCIFEROL) [Concomitant]

REACTIONS (9)
  - Pain [None]
  - Femur fracture [None]
  - Stress fracture [None]
  - Low turnover osteopathy [None]
  - Bone disorder [None]
  - Fall [None]
  - Gait disturbance [None]
  - Fracture displacement [None]
  - Bursitis [None]

NARRATIVE: CASE EVENT DATE: 2010
